FAERS Safety Report 10447298 (Version 2)
Quarter: 2014Q3

REPORT INFORMATION
  Report Type: Report from Study
  Country: US (occurrence: US)
  Receive Date: 20140911
  Receipt Date: 20140922
  Transmission Date: 20150326
  Serious: Yes (Death, Hospitalization)
  Sender: FDA-Public Use
  Company Number: US-JNJFOC-20140908459

PATIENT
  Age: 66 Year
  Sex: Male
  Weight: 93 kg

DRUGS (3)
  1. FOLATE [Concomitant]
     Active Substance: FOLATE SODIUM
  2. IMBRUVICA [Suspect]
     Active Substance: IBRUTINIB
     Indication: CHRONIC LYMPHOCYTIC LEUKAEMIA
     Route: 048
     Dates: start: 20140425, end: 20140815
  3. ALLOPURINOL. [Concomitant]
     Active Substance: ALLOPURINOL

REACTIONS (10)
  - Fall [Unknown]
  - Decreased appetite [Unknown]
  - Thrombocytopenia [Unknown]
  - Lethargy [Not Recovered/Not Resolved]
  - Metabolic acidosis [Fatal]
  - Hypotension [Unknown]
  - Dizziness [Unknown]
  - Upper gastrointestinal haemorrhage [Unknown]
  - Asthenia [Unknown]
  - Renal failure acute [Unknown]

NARRATIVE: CASE EVENT DATE: 201407
